FAERS Safety Report 7655517-3 (Version None)
Quarter: 2011Q3

REPORT INFORMATION
  Report Type: 
  Country: None (occurrence: None)
  Receive Date: 20110728
  Receipt Date: 20110718
  Transmission Date: 20111222
  Serious: Yes (Other)
  Sender: FDA-Public Use
  Company Number: DSA_47210_2011

PATIENT
  Sex: Female

DRUGS (1)
  1. BUPROPION HCL [Suspect]
     Indication: PRODUCT USED FOR UNKNOWN INDICATION
     Dosage: DF, ORAL
     Route: 048

REACTIONS (9)
  - HEADACHE [None]
  - FEAR [None]
  - DRY MOUTH [None]
  - AGGRESSION [None]
  - ABDOMINAL PAIN [None]
  - INSOMNIA [None]
  - IRRITABILITY [None]
  - DECREASED APPETITE [None]
  - DISTURBANCE IN ATTENTION [None]
